FAERS Safety Report 5320653-3 (Version None)
Quarter: 2007Q2

REPORT INFORMATION
  Report Type: 
  Country: None (occurrence: None)
  Receive Date: 20070502
  Receipt Date: 20070418
  Transmission Date: 20071010
  Serious: Yes (Other)
  Sender: FDA-Public Use
  Company Number: 2007PV032822

PATIENT
  Sex: Female

DRUGS (3)
  1. SYMLIN [Suspect]
     Indication: DIABETES MELLITUS INSULIN-DEPENDENT
     Dosage: 60 MCG; TID; SC
     Route: 058
     Dates: start: 20060101
  2. AVAPRO [Suspect]
     Indication: HYPERTENSION
     Dosage: 150 MG; QD
     Dates: end: 20070416
  3. INSULIN [Concomitant]

REACTIONS (1)
  - SYNCOPE VASOVAGAL [None]
